FAERS Safety Report 15028781 (Version 2)
Quarter: 2018Q4

REPORT INFORMATION
  Report Type: Spontaneous
  Country: US (occurrence: US)
  Receive Date: 20180619
  Receipt Date: 20181205
  Transmission Date: 20190204
  Serious: Yes (Other)
  Sender: FDA-Public Use
  Company Number: US-SA-2018SA003318

PATIENT
  Age: 60 Year
  Sex: Female
  Weight: 99 kg

DRUGS (12)
  1. NEOSAR [Concomitant]
     Active Substance: CYCLOPHOSPHAMIDE
     Dosage: 159 MG,UNK
     Route: 042
     Dates: start: 20150414
  2. CYMBALTA [Concomitant]
     Active Substance: DULOXETINE HYDROCHLORIDE
  3. SYNTHROID [Concomitant]
     Active Substance: LEVOTHYROXINE SODIUM
  4. SOMA [Concomitant]
     Active Substance: CARISOPRODOL
  5. OXYCODONE [Concomitant]
     Active Substance: OXYCODONE
  6. TAXOTERE [Suspect]
     Active Substance: DOCETAXEL
     Dosage: 159 MG,Q3W
     Route: 042
     Dates: start: 20150806, end: 20150806
  7. OXYCONTIN [Concomitant]
     Active Substance: OXYCODONE HYDROCHLORIDE
  8. NEULASTA [Concomitant]
     Active Substance: PEGFILGRASTIM
  9. TAXOTERE [Suspect]
     Active Substance: DOCETAXEL
     Indication: BREAST CANCER FEMALE
     Dosage: 159 MG,Q3W
     Route: 042
     Dates: start: 20150414, end: 20150414
  10. FASLODEX [Concomitant]
     Active Substance: FULVESTRANT
  11. DEXAMETHASONE SODIUM PHOSPHATE. [Concomitant]
     Active Substance: DEXAMETHASONE SODIUM PHOSPHATE
     Dosage: 10 MG,UNK
     Route: 042
     Dates: start: 20150414
  12. PALONOSETRON HYDROCHLORIDE. [Concomitant]
     Active Substance: PALONOSETRON HYDROCHLORIDE
     Dosage: .25 MG,UNK
     Route: 042
     Dates: start: 20150414

REACTIONS (1)
  - Alopecia [Recovering/Resolving]

NARRATIVE: CASE EVENT DATE: 2015
